FAERS Safety Report 9449097 (Version 1)
Quarter: 2013Q3

REPORT INFORMATION
  Report Type: Spontaneous
  Country: US (occurrence: US)
  Receive Date: 20130808
  Receipt Date: 20130808
  Transmission Date: 20140515
  Serious: Yes (Other)
  Sender: FDA-Public Use
  Company Number: CHPA2013US012381

PATIENT
  Age: 64 Year
  Sex: Male

DRUGS (1)
  1. VOLTAREN GEL [Suspect]
     Indication: INTERVERTEBRAL DISC PROTRUSION
     Dosage: 1 UNK, UNK
     Route: 061
     Dates: start: 201307

REACTIONS (3)
  - Bladder irritation [Unknown]
  - Off label use [Unknown]
  - Drug administered at inappropriate site [Unknown]
